FAERS Safety Report 7238031-9 (Version None)
Quarter: 2011Q1

REPORT INFORMATION
  Report Type: 
  Country: None (occurrence: None)
  Receive Date: 20110121
  Receipt Date: 20110117
  Transmission Date: 20110831
  Serious: Yes (Death)
  Sender: FDA-Public Use
  Company Number: A0907428A

PATIENT
  Age: 68 Year
  Sex: Male

DRUGS (1)
  1. ARIXTRA [Suspect]
     Dosage: 7.5MG UNKNOWN
     Route: 042
     Dates: start: 20100525

REACTIONS (1)
  - DEATH [None]
